FAERS Safety Report 22150802 (Version 1)
Quarter: 2023Q1

REPORT INFORMATION
  Report Type: Spontaneous
  Country: US (occurrence: US)
  Receive Date: 20230329
  Receipt Date: 20230329
  Transmission Date: 20230418
  Serious: Yes (Hospitalization, Other)
  Sender: FDA-Public Use
  Company Number: US-APOTEX-2023AP005794

PATIENT
  Age: 35 Year
  Sex: Female

DRUGS (3)
  1. ONDANSETRON [Suspect]
     Active Substance: ONDANSETRON
     Indication: Alcohol poisoning
     Dosage: UNK
     Route: 042
  2. KETOROLAC [Suspect]
     Active Substance: KETOROLAC TROMETHAMINE
     Indication: Alcohol poisoning
     Dosage: UNK
     Route: 042
  3. VITAMINS [Suspect]
     Active Substance: VITAMINS
     Indication: Alcohol poisoning
     Dosage: UNK
     Route: 042

REACTIONS (9)
  - Unresponsive to stimuli [Unknown]
  - Cardiac arrest [Unknown]
  - Hypomagnesaemia [Unknown]
  - Brain injury [Unknown]
  - Cerebral disorder [Unknown]
  - Long QT syndrome [Unknown]
  - Ventricular fibrillation [Unknown]
  - Hypokalaemia [Unknown]
  - Ventricular tachycardia [Unknown]
